FAERS Safety Report 26093826 (Version 2)
Quarter: 2025Q4

REPORT INFORMATION
  Report Type: Spontaneous
  Country: EU (occurrence: None)
  Receive Date: 20251126
  Receipt Date: 20251210
  Transmission Date: 20260118
  Serious: Yes (Hospitalization, Other)
  Sender: UCB
  Company Number: EU-UCBSA-2025073498

PATIENT
  Weight: 58 kg

DRUGS (4)
  1. FINTEPLA [Suspect]
     Active Substance: FENFLURAMINE
     Indication: Lennox-Gastaut syndrome
     Dosage: 4 MILLILITER, 2X/DAY (BID)
  2. VALPROATE SODIUM [Concomitant]
     Active Substance: VALPROATE SODIUM
     Indication: Lennox-Gastaut syndrome
     Dosage: 250 MILLIGRAM, 2X/DAY (BID)
  3. INOVELON [Concomitant]
     Active Substance: RUFINAMIDE
     Indication: Lennox-Gastaut syndrome
     Dosage: 800 MILLIGRAM, 2X/DAY (BID)
  4. RIVOTRIL [Concomitant]
     Active Substance: CLONAZEPAM
     Indication: Lennox-Gastaut syndrome
     Dosage: 1 MILLIGRAM, ONCE DAILY (QD)

REACTIONS (1)
  - Hallucination, visual [Recovered/Resolved]
